FAERS Safety Report 9667849 (Version 2)
Quarter: 2014Q1

REPORT INFORMATION
  Report Type: Report from Study
  Country: BR (occurrence: BR)
  Receive Date: 20131104
  Receipt Date: 20140109
  Transmission Date: 20141002
  Serious: Yes (Death, Hospitalization)
  Sender: FDA-Public Use
  Company Number: PHHY2013BR124669

PATIENT
  Age: 82 Year
  Sex: Male

DRUGS (1)
  1. FORASEQ [Suspect]
     Dosage: UNK

REACTIONS (2)
  - Death [Fatal]
  - Renal disorder [Unknown]
